FAERS Safety Report 5753694-2 (Version None)
Quarter: 2008Q2

REPORT INFORMATION
  Report Type: 
  Country: None (occurrence: None)
  Receive Date: 20080527
  Receipt Date: 20080527
  Transmission Date: 20081010
  Serious: Yes (Hospitalization)
  Sender: FDA-Public Use
  Company Number: None

PATIENT
  Sex: Female
  Weight: 59.5 kg

DRUGS (5)
  1. ABRAXANE [Suspect]
     Indication: ADENOCARCINOMA
     Dosage: 429 MG D1/EACH CYCLE 042
     Dates: start: 20080430, end: 20080521
  2. VANDETANIB [Suspect]
     Indication: ADENOCARCINOMA
     Dosage: 100 MG QD 047
     Dates: start: 20080430, end: 20080521
  3. VITAMIN E [Concomitant]
  4. PENTOXIFYLLINE [Concomitant]
  5. PREDNISONE TAB [Concomitant]

REACTIONS (2)
  - DYSPNOEA [None]
  - OBSTRUCTIVE AIRWAYS DISORDER [None]
